FAERS Safety Report 16042091 (Version 1)
Quarter: 2019Q1

REPORT INFORMATION
  Report Type: Report from Study
  Country: None (occurrence: US)
  Receive Date: 20190306
  Receipt Date: 20190306
  Transmission Date: 20190418
  Serious: Yes (Other)
  Sender: FDA-Public Use
  Company Number: US-ABBVIE-18K-163-2608136-00

PATIENT
  Age: 54 Year
  Sex: Female
  Weight: 68.1 kg

DRUGS (1)
  1. HUMIRA [Suspect]
     Active Substance: ADALIMUMAB
     Indication: CROHN^S DISEASE
     Route: 058
     Dates: start: 201809

REACTIONS (4)
  - Gastrointestinal inflammation [Recovered/Resolved]
  - Small intestinal stenosis [Recovered/Resolved]
  - Small intestinal obstruction [Recovered/Resolved]
  - Abdominal distension [Not Recovered/Not Resolved]
